FAERS Safety Report 10034390 (Version 2)
Quarter: 2014Q1

REPORT INFORMATION
  Report Type: Report from Study
  Country: US (occurrence: US)
  Receive Date: 20140325
  Receipt Date: 20140325
  Transmission Date: 20141002
  Serious: Yes (Death)
  Sender: FDA-Public Use
  Company Number: US-BAYER-2012-104091

PATIENT
  Sex: Female
  Weight: 60.32 kg

DRUGS (13)
  1. REGORAFENIB [Suspect]
     Indication: COLON CANCER METASTATIC
     Dosage: DAILY DOSE 160 MG
     Route: 048
     Dates: start: 20120912, end: 20120929
  2. NIFEDIPINE [Concomitant]
     Indication: HYPERTENSION
     Dosage: DAILY DOSE 90 MG
     Route: 048
     Dates: start: 2010, end: 20120929
  3. DIGOXIN [Concomitant]
     Indication: ARRHYTHMIA
     Dosage: DAILY DOSE 125 ?G
     Route: 048
     Dates: start: 2010, end: 20120929
  4. WARFARIN [Concomitant]
     Indication: ATRIAL FIBRILLATION
     Dosage: DAILY DOSE 3 MG
     Route: 048
     Dates: start: 2010, end: 20120929
  5. LEXAPRO [Concomitant]
     Dosage: DAILY DOSE 20 MG
     Route: 048
     Dates: start: 20120111, end: 20120929
  6. LORAZEPAM [Concomitant]
     Indication: ANXIETY
     Dosage: DAILY DOSE 1 MG
     Route: 048
     Dates: start: 201110, end: 20120929
  7. FUROSEMIDE [Concomitant]
     Indication: OEDEMA DUE TO CARDIAC DISEASE
     Dosage: DAILY DOSE 20 MG
     Route: 048
     Dates: start: 2010, end: 20120929
  8. FUROSEMIDE [Concomitant]
     Indication: CARDIAC FAILURE CONGESTIVE
  9. POTASSIUM CHLORIDE [Concomitant]
     Indication: PROPHYLAXIS
     Dosage: DAILY DOSE 20 MEQ
     Route: 048
     Dates: start: 2010, end: 20120929
  10. POTASSIUM CHLORIDE [Concomitant]
     Indication: PROPHYLAXIS
  11. HYDROCODONE W/ACETAMINOPHEN [Concomitant]
     Indication: PAIN
     Dosage: 10/325 TOTAL DAILY DOSE
     Route: 048
     Dates: start: 2010, end: 20120929
  12. FAMOTIDINE [Concomitant]
     Indication: NAUSEA
     Dosage: DAILY DOSE 40 MG
     Route: 048
     Dates: start: 20120110, end: 20120929
  13. DULCOLAX [DOCUSATE SODIUM] [Concomitant]
     Indication: CONSTIPATION
     Dosage: DAILY DOSE 200 MG
     Route: 048
     Dates: start: 20120228, end: 20120929

REACTIONS (1)
  - Cardio-respiratory arrest [Fatal]
